FAERS Safety Report 9716024 (Version 3)
Quarter: 2013Q4

REPORT INFORMATION
  Report Type: Report from Study
  Country: US (occurrence: US)
  Receive Date: 20131127
  Receipt Date: 20131218
  Transmission Date: 20140711
  Serious: Yes (Hospitalization, Other)
  Sender: FDA-Public Use
  Company Number: US-ASTELLAS-2013US002971

PATIENT
  Age: 65 Year
  Sex: Male
  Weight: 121 kg

DRUGS (3)
  1. BLINDED SOLIFENACIN [Suspect]
     Indication: INCONTINENCE
     Dosage: 5 MG, UID/QD
     Route: 048
     Dates: start: 20130219, end: 20130312
  2. ALEVE [Concomitant]
     Indication: INFLUENZA
     Dosage: UNK
     Route: 065
  3. CHERATUSSIN [Concomitant]
     Indication: INFLUENZA
     Dosage: UNK
     Route: 065

REACTIONS (3)
  - Lymphocele [Recovered/Resolved]
  - Pulmonary embolism [Recovered/Resolved]
  - Infected lymphocele [Recovered/Resolved]
